FAERS Safety Report 17692263 (Version 4)
Quarter: 2021Q1

REPORT INFORMATION
  Report Type: Spontaneous
  Country: US (occurrence: US)
  Receive Date: 20200422
  Receipt Date: 20210225
  Transmission Date: 20210419
  Serious: No
  Sender: FDA-Public Use
  Company Number: US-PFIZER INC-2020002181

PATIENT
  Age: 63 Year
  Sex: Female

DRUGS (1)
  1. XELJANZ XR [Suspect]
     Active Substance: TOFACITINIB CITRATE
     Indication: RHEUMATOID ARTHRITIS
     Dosage: 11 MG, DAILY
     Route: 048
     Dates: start: 2017

REACTIONS (5)
  - Sensitivity to weather change [Unknown]
  - Cough [Unknown]
  - Joint swelling [Recovering/Resolving]
  - Skin discolouration [Unknown]
  - Depressed mood [Unknown]

NARRATIVE: CASE EVENT DATE: 202012
